FAERS Safety Report 15644182 (Version 2)
Quarter: 2019Q1

REPORT INFORMATION
  Report Type: Spontaneous
  Country: JP (occurrence: JP)
  Receive Date: 20181121
  Receipt Date: 20190131
  Transmission Date: 20190417
  Serious: Yes (Hospitalization)
  Sender: FDA-Public Use
  Company Number: JP-EISAI MEDICAL RESEARCH-EC-2018-047209

PATIENT
  Age: 63 Year
  Sex: Female

DRUGS (3)
  1. HALAVEN [Suspect]
     Active Substance: ERIBULIN MESYLATE
     Route: 041
     Dates: start: 20180416, end: 2018
  2. HALAVEN [Suspect]
     Active Substance: ERIBULIN MESYLATE
     Indication: ANGIOSARCOMA
     Route: 041
     Dates: start: 20180326, end: 201804
  3. HALAVEN [Suspect]
     Active Substance: ERIBULIN MESYLATE
     Dosage: UNKNOWN
     Route: 041
     Dates: start: 20181019, end: 20181019

REACTIONS (1)
  - Pneumothorax [Recovering/Resolving]

NARRATIVE: CASE EVENT DATE: 20181026
